FAERS Safety Report 25449116 (Version 2)
Quarter: 2025Q2

REPORT INFORMATION
  Report Type: Spontaneous
  Country: US (occurrence: US)
  Receive Date: 20250618
  Receipt Date: 20250626
  Transmission Date: 20250716
  Serious: Yes (Other)
  Sender: AUROBINDO
  Company Number: US-AUROBINDO-AUR-APL-2025-029747

PATIENT
  Age: 52 Year
  Sex: Male

DRUGS (2)
  1. METOPROLOL [Suspect]
     Active Substance: METOPROLOL
     Indication: Hypertrophic cardiomyopathy
     Route: 065
  2. DISOPYRAMIDE [Suspect]
     Active Substance: DISOPYRAMIDE
     Indication: Hypertrophic cardiomyopathy
     Route: 065

REACTIONS (1)
  - Drug ineffective [Unknown]
